FAERS Safety Report 5074691-9 (Version None)
Quarter: 2006Q3

REPORT INFORMATION
  Report Type: 
  Country: None (occurrence: None)
  Receive Date: 20060803
  Receipt Date: 20060718
  Transmission Date: 20061208
  Serious: No
  Sender: FDA-Public Use
  Company Number: US200605004457

PATIENT
  Age: 50 Year
  Sex: Female
  Weight: 67.1 kg

DRUGS (10)
  1. CYMBALTA [Suspect]
     Indication: PAIN
     Dosage: 60 MG, DAILY (1/D), UNK
     Dates: start: 20060201
  2. LORCET-HD [Concomitant]
  3. DEMEROL  /CAN/ (PETHIDNE HYDROCHLORIDE) [Concomitant]
  4. VIVELLE [Concomitant]
  5. REMERON [Concomitant]
  6. SYNTHROID [Concomitant]
  7. XANAX   /USA/(ALPRAZOLAM) [Concomitant]
  8. RESTORIL [Concomitant]
  9. AMBIEN(ZOLPIDEM TRATRATE) [Concomitant]
  10. CLONOPIN [Concomitant]

REACTIONS (4)
  - ANTI-HBS ANTIBODY POSITIVE [None]
  - ASCITES [None]
  - BLOOD ALKALINE PHOSPHATASE INCREASED [None]
  - GAMMA-GLUTAMYLTRANSFERASE INCREASED [None]
